FAERS Safety Report 10990837 (Version 2)
Quarter: 2015Q3

REPORT INFORMATION
  Report Type: Spontaneous
  Country: US (occurrence: None)
  Receive Date: 20150330
  Receipt Date: 20150630
  Transmission Date: 20151125
  Serious: Yes (Hospitalization)
  Sender: FDA-Public Use
  Company Number: US-2015-10551

PATIENT
  Age: 35 Year
  Sex: Female

DRUGS (4)
  1. ABILIFY MAINTENA [Suspect]
     Active Substance: ARIPIPRAZOLE
     Indication: BIPOLAR DISORDER
     Dosage: 300 MG MILLIGRAM (S), QM, IM (DEPOT)
     Route: 030
     Dates: start: 20140625, end: 20140625
  2. ABILIFY MAINTENA [Suspect]
     Active Substance: ARIPIPRAZOLE
     Indication: PSYCHOTIC DISORDER
     Dosage: 300 MG MILLIGRAM (S), QM, IM (DEPOT)
     Route: 030
     Dates: start: 20140625, end: 20140625
  3. CELEXA [Concomitant]
     Active Substance: CITALOPRAM HYDROBROMIDE
  4. ABILIFY MAINTENA [Suspect]
     Active Substance: ARIPIPRAZOLE
     Indication: SCHIZOAFFECTIVE DISORDER
     Dosage: 300 MG MILLIGRAM (S), QM, IM (DEPOT)
     Route: 030
     Dates: start: 20140625, end: 20140625

REACTIONS (5)
  - Prescribed underdose [None]
  - Product use issue [None]
  - Psychiatric decompensation [None]
  - Treatment noncompliance [None]
  - Panic attack [None]
